FAERS Safety Report 4430747-2 (Version None)
Quarter: 2004Q3

REPORT INFORMATION
  Report Type: 
  Country: None (occurrence: None)
  Receive Date: 20040818
  Receipt Date: 20040810
  Transmission Date: 20050211
  Serious: Yes (Hospitalization)
  Sender: FDA-Public Use
  Company Number: M200408-0092-1

PATIENT
  Age: 51 Year
  Sex: Male

DRUGS (9)
  1. ANAFRANIL [Suspect]
     Indication: DEPRESSION
     Dosage: 100 MG DAILY
     Dates: start: 20030712, end: 20040712
  2. BISOPROLOL FUMARATE [Concomitant]
  3. ISOSORBIDE [Concomitant]
  4. RISPERIDONE [Concomitant]
  5. RAMIPRIL [Concomitant]
  6. LORAZEPAM [Concomitant]
  7. FERROUS SULFATE TAB [Concomitant]
  8. DIGOXIN [Concomitant]
  9. FUROSEMIDE [Concomitant]

REACTIONS (2)
  - BLOOD SODIUM DECREASED [None]
  - TARDIVE DYSKINESIA [None]
